FAERS Safety Report 23962041 (Version 1)
Quarter: 2024Q2

REPORT INFORMATION
  Report Type: Spontaneous
  Country: US (occurrence: US)
  Receive Date: 20240611
  Receipt Date: 20240611
  Transmission Date: 20240716
  Serious: No
  Sender: FDA-Public Use
  Company Number: US-RIGEL Pharmaceuticals, INC-2023FOS000659

PATIENT
  Sex: Female
  Weight: 87.71 kg

DRUGS (3)
  1. TAVALISSE [Suspect]
     Active Substance: FOSTAMATINIB
     Indication: Immune thrombocytopenia
     Dosage: 150 MG, QOD
     Dates: start: 20230523
  2. TAVALISSE [Suspect]
     Active Substance: FOSTAMATINIB
     Dosage: 150 MG, QD
     Route: 048
     Dates: end: 2023
  3. TAVALISSE [Suspect]
     Active Substance: FOSTAMATINIB
     Dosage: UNK
     Route: 065

REACTIONS (3)
  - Platelet count increased [Unknown]
  - Liver disorder [Unknown]
  - Product prescribing issue [Unknown]

NARRATIVE: CASE EVENT DATE: 20230101
